FAERS Safety Report 17866543 (Version 3)
Quarter: 2020Q2

REPORT INFORMATION
  Report Type: Spontaneous
  Country: US (occurrence: US)
  Receive Date: 20200605
  Receipt Date: 20200629
  Transmission Date: 20200714
  Serious: No
  Sender: FDA-Public Use
  Company Number: US-BIOGEN-2020BI00870670

PATIENT
  Age: 35 Year
  Sex: Male

DRUGS (7)
  1. VUMERITY [Suspect]
     Active Substance: DIROXIMEL FUMARATE
     Dosage: 1 CAPSULE TWICE DAILY FOR 7 DAYS
     Route: 048
  2. VUMERITY [Suspect]
     Active Substance: DIROXIMEL FUMARATE
     Dosage: 2 CAPSULES TWICE DAILY THEREAFTER (CURRENTLY IN WEEK 3)
     Route: 048
  3. VUMERITY [Suspect]
     Active Substance: DIROXIMEL FUMARATE
     Route: 048
     Dates: start: 20200428, end: 20200504
  4. VUMERITY [Suspect]
     Active Substance: DIROXIMEL FUMARATE
     Route: 048
     Dates: start: 20200505
  5. VUMERITY [Suspect]
     Active Substance: DIROXIMEL FUMARATE
     Indication: MULTIPLE SCLEROSIS
     Dosage: 1 CAPSULE AM FOR 7 DAYS
     Route: 048
     Dates: start: 20200428
  6. VUMERITY [Suspect]
     Active Substance: DIROXIMEL FUMARATE
     Dosage: 2 CAPSULES AM/1 CAPSULE PM FOR 7 DAYS
     Route: 048
  7. VUMERITY [Suspect]
     Active Substance: DIROXIMEL FUMARATE
     Dosage: 2 CAPSULES AM/1 CAPSULE PM FOR 7 DAYS
     Route: 048

REACTIONS (8)
  - Abdominal discomfort [Unknown]
  - Underdose [Unknown]
  - Flatulence [Unknown]
  - Diarrhoea [Recovered/Resolved]
  - Underdose [Unknown]
  - Pruritus [Recovered/Resolved]
  - Nausea [Unknown]
  - Dyspepsia [Unknown]

NARRATIVE: CASE EVENT DATE: 2020
